FAERS Safety Report 5056521-4 (Version None)
Quarter: 2006Q3

REPORT INFORMATION
  Report Type: 
  Country: None (occurrence: None)
  Receive Date: 20060720
  Receipt Date: 20031020
  Transmission Date: 20061208
  Serious: Yes (Hospitalization)
  Sender: FDA-Public Use
  Company Number: DE-ABBOTT-03P-062-0237832-02

PATIENT
  Sex: Female
  Weight: 54 kg

DRUGS (11)
  1. HUMIRA [Suspect]
     Indication: RHEUMATOID ARTHRITIS
     Dosage: 40 MG
     Route: 058
     Dates: start: 20001127
  2. PREDNISONE [Concomitant]
     Indication: RHEUMATOID ARTHRITIS
     Route: 048
     Dates: start: 20021220
  3. LANSOPRAZOLE [Concomitant]
     Indication: PROPHYLAXIS AGAINST GASTROINTESTINAL ULCER
     Route: 048
     Dates: start: 20020801
  4. COLECALCIFEROL [Concomitant]
     Indication: OSTEOPOROSIS PROPHYLAXIS
     Route: 048
     Dates: start: 20021201
  5. ALLOPURINOL [Concomitant]
     Indication: HYPERURICAEMIA
     Route: 048
     Dates: start: 20020221
  6. METHOTREXATE [Concomitant]
     Indication: RHEUMATOID ARTHRITIS
     Route: 048
     Dates: start: 20040101
  7. PREDNISONE [Concomitant]
     Route: 048
     Dates: start: 20031101
  8. SPIRONOLACTONE [Concomitant]
     Indication: PERICARDITIS CONSTRICTIVE
     Route: 048
     Dates: start: 20031101
  9. FOLIC ACID [Concomitant]
     Indication: RHEUMATOID ARTHRITIS
     Route: 048
     Dates: start: 20040101
  10. DIGOXIN [Concomitant]
     Indication: PERICARDITIS CONSTRICTIVE
     Route: 048
     Dates: start: 20031101
  11. COLECALCIFEROL [Concomitant]
     Route: 048
     Dates: start: 20031101

REACTIONS (2)
  - CARDIAC TAMPONADE [None]
  - PERICARDITIS CONSTRICTIVE [None]
